FAERS Safety Report 10019773 (Version 1)
Quarter: 2014Q1

REPORT INFORMATION
  Report Type: Spontaneous
  Country: US (occurrence: US)
  Receive Date: 20140318
  Receipt Date: 20140318
  Transmission Date: 20141002
  Serious: No
  Sender: FDA-Public Use
  Company Number: US-GALDERMA-US13004051

PATIENT
  Age: 28 Year
  Sex: Female

DRUGS (8)
  1. MIRVASO (BRIMONIDINE) TOPICAL GEL, 0.33% [Suspect]
     Indication: ERYTHEMA
     Dosage: 0.33%
     Route: 061
     Dates: start: 20131205, end: 20131209
  2. MIRVASO (BRIMONIDINE) TOPICAL GEL, 0.33% [Suspect]
     Indication: FLUSHING
  3. CETAPHIL DAILY FACIAL CLEANSER [Concomitant]
     Indication: THERAPEUTIC SKIN CARE TOPICAL
     Route: 061
     Dates: start: 2007
  4. LACURA NIGHT CREAM [Concomitant]
     Indication: DRY SKIN PROPHYLAXIS
     Route: 061
     Dates: start: 2011
  5. BIORE FOUNDATION [Concomitant]
     Indication: THERAPEUTIC SKIN CARE TOPICAL
     Route: 061
     Dates: start: 2012
  6. DIFFERIN (ADAPALENE) CREAM, 0.1% [Concomitant]
     Indication: ACNE
     Dosage: 0.1%
     Route: 061
     Dates: start: 2003
  7. DIFFERIN (ADAPALENE) GEL, 0.3% [Concomitant]
     Indication: ACNE
     Dosage: 0.3%
     Route: 061
     Dates: start: 2003
  8. SPIRONOLACTONE (ALDACTONE) [Concomitant]
     Indication: ACNE
     Dosage: 25MG
     Route: 048
     Dates: start: 2009

REACTIONS (5)
  - Rebound effect [Not Recovered/Not Resolved]
  - Feeling hot [Not Recovered/Not Resolved]
  - Erythema [Not Recovered/Not Resolved]
  - Flushing [Not Recovered/Not Resolved]
  - Off label use [Recovered/Resolved]
